FAERS Safety Report 18289242 (Version 1)
Quarter: 2020Q3

REPORT INFORMATION
  Report Type: Spontaneous
  Country: US (occurrence: US)
  Receive Date: 20200921
  Receipt Date: 20200921
  Transmission Date: 20201103
  Serious: Yes (Hospitalization)
  Sender: FDA-Public Use
  Company Number: None

PATIENT
  Age: 70 Year
  Sex: Female
  Weight: 54 kg

DRUGS (14)
  1. JANUVIA [Concomitant]
     Active Substance: SITAGLIPTIN PHOSPHATE
  2. UREA 20% [Concomitant]
  3. POTASSIUM CHLORIDE. [Concomitant]
     Active Substance: POTASSIUM CHLORIDE
  4. GLYBURIDE?METFORMIN 5?500MG [Concomitant]
  5. ONDANSETRON 8MG [Concomitant]
     Active Substance: ONDANSETRON
  6. CALCIUM 600MG [Concomitant]
  7. ATORVASTATIN 20MG [Concomitant]
     Active Substance: ATORVASTATIN
  8. CAPECITABINE. [Suspect]
     Active Substance: CAPECITABINE
     Indication: COLON CANCER
     Dosage: ?          OTHER FREQUENCY:BIDX7DAYS, 7 OFF;?
     Route: 048
     Dates: start: 20200620
  9. VITAMIN D [Concomitant]
     Active Substance: VITAMIN D NOS
  10. LOTEMAX 0.5% [Concomitant]
  11. RISPERIDONE 1MG [Concomitant]
     Active Substance: RISPERIDONE
  12. ALENDRONATE 70MG [Concomitant]
     Active Substance: ALENDRONATE SODIUM
  13. DETROL 1MG [Concomitant]
  14. BRIMONIDINE TARTRATE 0.15% [Concomitant]

REACTIONS (1)
  - Urinary tract infection [None]

NARRATIVE: CASE EVENT DATE: 20200920
